FAERS Safety Report 21444270 (Version 3)
Quarter: 2022Q4

REPORT INFORMATION
  Report Type: Report from Study
  Country: BE (occurrence: BE)
  Receive Date: 20221012
  Receipt Date: 20221031
  Transmission Date: 20230112
  Serious: Yes (Hospitalization)
  Sender: FDA-Public Use
  Company Number: BE-ABBVIE-4150722

PATIENT
  Sex: Male

DRUGS (12)
  1. CARBIDOPA\LEVODOPA [Suspect]
     Active Substance: CARBIDOPA\LEVODOPA
     Indication: Parkinson^s disease
     Dosage: MD: 6.5 ML, CD: 3.8 ML/H, ED: 2.5 ML; REMAINS AT 16 HOURS
     Route: 050
     Dates: start: 20220513, end: 20220801
  2. CARBIDOPA\LEVODOPA [Suspect]
     Active Substance: CARBIDOPA\LEVODOPA
     Dosage: MD: 5.0 ML, CD: 3.8 ML/H, ED: 2.5 ML, CND: 2.2 ML/HR; REMAINS AT 24 HOURS
     Route: 050
     Dates: start: 20220926, end: 20221010
  3. CARBIDOPA\LEVODOPA [Suspect]
     Active Substance: CARBIDOPA\LEVODOPA
     Dosage: MD: 6.5 ML, CD: 3.8 ML/H, ED: 2.5 ML; REMAINS AT 16 HOURS
     Route: 050
     Dates: start: 20220801, end: 20220926
  4. CARBIDOPA\LEVODOPA [Suspect]
     Active Substance: CARBIDOPA\LEVODOPA
     Dosage: MD: 7.0 ML, CD: 3.8 ML/H, ED: 2.5 ML, CND: 2.4 ML/HR; REMAINS AT 24 HOURS
     Route: 050
     Dates: start: 20221010, end: 20221018
  5. CARBIDOPA\LEVODOPA [Suspect]
     Active Substance: CARBIDOPA\LEVODOPA
     Route: 050
     Dates: start: 20191209
  6. CARBIDOPA\LEVODOPA [Suspect]
     Active Substance: CARBIDOPA\LEVODOPA
     Dosage: MD: 7.0 ML, CD: 3.8 ML/H, ED: 2.5 ML, CND: 2.6 ML/HR; REMAINS AT 24 HOURS
     Dates: start: 20221018, end: 20221021
  7. CARBIDOPA\LEVODOPA [Suspect]
     Active Substance: CARBIDOPA\LEVODOPA
     Dosage: MD: 7.0 ML, CD: 4.0 ML/H, ED: 2.5 ML, CND: 2.6 ML/HR; REMAINS AT 24 HOURS
     Route: 050
     Dates: start: 20221021
  8. BENSERAZIDE\LEVODOPA [Concomitant]
     Active Substance: BENSERAZIDE\LEVODOPA
     Indication: Product used for unknown indication
     Dosage: DISPERSIBLE?125 UNKNOWN?FREQUENCY TEXT: AT 07:00, 12:00 AND 17:00 HRS
  9. STALEVO [Concomitant]
     Active Substance: CARBIDOPA\ENTACAPONE\LEVODOPA
     Indication: Product used for unknown indication
     Dosage: 50/12,5/200
  10. STALEVO [Concomitant]
     Active Substance: CARBIDOPA\ENTACAPONE\LEVODOPA
     Indication: Product used for unknown indication
     Dosage: 100/25/200?FREQUENCY TEXT: AT 12:00 AND 14:00 HRS
  11. STALEVO [Concomitant]
     Active Substance: CARBIDOPA\ENTACAPONE\LEVODOPA
     Indication: Product used for unknown indication
     Dosage: 50/12,5/200?FREQUENCY TEXT: AT 07:00, 16:00 AND 20:00 HRS
  12. BENSERAZIDE\LEVODOPA [Concomitant]
     Active Substance: BENSERAZIDE\LEVODOPA
     Indication: Product used for unknown indication
     Dosage: 125 UNKNOWN?FREQUENCY TEXT: AT 22:00 HRS

REACTIONS (4)
  - Cystitis [Unknown]
  - Muscle rigidity [Not Recovered/Not Resolved]
  - Mobility decreased [Unknown]
  - Dystonia [Not Recovered/Not Resolved]

NARRATIVE: CASE EVENT DATE: 20220101
